FAERS Safety Report 7746686-5 (Version None)
Quarter: 2011Q3

REPORT INFORMATION
  Report Type: 
  Country: None (occurrence: None)
  Receive Date: 20110908
  Receipt Date: 20110824
  Transmission Date: 20111222
  Serious: Yes (Hospitalization)
  Sender: FDA-Public Use
  Company Number: 2011P1008501

PATIENT
  Age: 64 Year
  Sex: Male
  Weight: 102.5129 kg

DRUGS (13)
  1. ASPIRIN [Concomitant]
  2. DYAZIDE [Concomitant]
  3. FENTANYL [Suspect]
     Indication: ARTHRALGIA
     Dosage: 1 PATCH;Q3D;TDER
     Route: 062
     Dates: start: 20060101, end: 20110817
  4. SIMVASTATIN [Concomitant]
  5. MULTI-VITAMIN [Concomitant]
  6. LEVEMIR [Concomitant]
  7. AMIODARONE HCL [Concomitant]
  8. LOVAZA [Concomitant]
  9. LYRICA [Concomitant]
  10. HYDROCODONE/ACETAMINOPHIN [Concomitant]
  11. HUMULIN R [Concomitant]
  12. ENALAPIRL [Concomitant]
  13. OMEPRAZOLE [Concomitant]

REACTIONS (6)
  - CONFUSIONAL STATE [None]
  - MEDICAL DEVICE COMPLICATION [None]
  - DRUG EFFECT DECREASED [None]
  - HALLUCINATION [None]
  - WEIGHT DECREASED [None]
  - ASTHENIA [None]
